FAERS Safety Report 19066380 (Version 1)
Quarter: 2021Q1

REPORT INFORMATION
  Report Type: Spontaneous
  Country: IE (occurrence: IE)
  Receive Date: 20210328
  Receipt Date: 20210328
  Transmission Date: 20210420
  Serious: Yes (Life-Threatening, Hospitalization, Disabling)
  Sender: FDA-Public Use
  Company Number: IE-TEVA-2021-IE-1894027

PATIENT
  Age: 21 Year
  Sex: Female
  Weight: 69.92 kg

DRUGS (7)
  1. OLANZAPINE (G) [Suspect]
     Active Substance: OLANZAPINE
     Dosage: REPORTED TO HAVE BEEN ADMINISTERED IN ORAL AND INJECTION FORM
     Dates: start: 19890801, end: 20210201
  2. KLACID [Suspect]
     Active Substance: CLARITHROMYCIN
     Dosage: REPORTED TO HAVE BEEN ADMINISTERED IN ORAL AND INJECTION FORM
     Dates: start: 19890801, end: 20210201
  3. SOLIAN [Concomitant]
     Active Substance: AMISULPRIDE
  4. LERCANIDIPINE (G) [Concomitant]
  5. MIRTAZAPINE (G) [Suspect]
     Active Substance: MIRTAZAPINE
     Dosage: REPORTED TO HAVE BEEN ADMINISTERED IN ORAL AND INJECTION FORM
     Dates: start: 19890801, end: 20210201
  6. EFEXOR XL PROLONGED RELEASE CAPSULES 37.5MG MILLIGRAM [Concomitant]
  7. PANTIUM [Concomitant]

REACTIONS (6)
  - Hostility [Unknown]
  - Diarrhoea [Unknown]
  - Dyspnoea [Unknown]
  - Hyperhidrosis [Unknown]
  - Social avoidant behaviour [Unknown]
  - Vomiting [Unknown]
